FAERS Safety Report 22399397 (Version 2)
Quarter: 2023Q2

REPORT INFORMATION
  Report Type: Spontaneous
  Country: US (occurrence: US)
  Receive Date: 20230602
  Receipt Date: 20230605
  Transmission Date: 20230721
  Serious: No
  Sender: FDA-Public Use
  Company Number: US-AMGEN-USASP2023095371

PATIENT
  Age: 73 Year
  Sex: Female

DRUGS (2)
  1. AMJEVITA [Suspect]
     Active Substance: ADALIMUMAB-ATTO
     Indication: Rheumatoid arthritis
     Dosage: 40 MILLIGRAM, Q2WK
     Route: 065
     Dates: start: 2023
  2. AMJEVITA [Suspect]
     Active Substance: ADALIMUMAB-ATTO
     Dosage: 40 MILLIGRAM, Q2WK
     Route: 065

REACTIONS (3)
  - Wrong technique in product usage process [Unknown]
  - Device difficult to use [Unknown]
  - Product storage error [Unknown]

NARRATIVE: CASE EVENT DATE: 20230531
